FAERS Safety Report 8561802-3 (Version None)
Quarter: 2012Q3

REPORT INFORMATION
  Report Type: 
  Country: None (occurrence: None)
  Receive Date: 20120802
  Receipt Date: 20120718
  Transmission Date: 20120928
  Serious: Yes (Other)
  Sender: FDA-Public Use
  Company Number: CHPA2012US016085

PATIENT
  Age: 76 Year
  Sex: Female

DRUGS (1)
  1. DESENEX ANTIFUNGAL [Suspect]
     Indication: HYPERHIDROSIS
     Dosage: UNK, PRN
     Route: 061
     Dates: start: 19620101

REACTIONS (4)
  - CATARACT [None]
  - TOOTH ABSCESS [None]
  - HYPERTENSION [None]
  - OFF LABEL USE [None]
